FAERS Safety Report 25820734 (Version 1)
Quarter: 2025Q3

REPORT INFORMATION
  Report Type: Report from Study
  Country: US (occurrence: US)
  Receive Date: 20250919
  Receipt Date: 20250919
  Transmission Date: 20251020
  Serious: No
  Sender: SUNOVION
  Company Number: US-SUMITOMO PHARMA SWITZERLAND GMBH-2025SPA011667

PATIENT
  Age: 86 Year
  Sex: Male

DRUGS (13)
  1. ORGOVYX [Suspect]
     Active Substance: RELUGOLIX
     Indication: Prostate cancer
     Route: 048
  2. CASODEX [Concomitant]
     Active Substance: BICALUTAMIDE
  3. CLONAZEPAM [Concomitant]
     Active Substance: CLONAZEPAM
  4. DULOXETINE [Concomitant]
     Active Substance: DULOXETINE
  5. FENTANYL [Concomitant]
     Active Substance: FENTANYL
  6. LISINOPRIL [Concomitant]
     Active Substance: LISINOPRIL
  7. LUPRON [Concomitant]
     Active Substance: LEUPROLIDE ACETATE
  8. METFORMIN [Concomitant]
     Active Substance: METFORMIN HYDROCHLORIDE
  9. NEURONTIN [Concomitant]
     Active Substance: GABAPENTIN
  10. SIMVASTATIN [Concomitant]
     Active Substance: SIMVASTATIN
  11. SULFAMETHOXAZOLE AND TRIMETHOPRIM [Concomitant]
     Active Substance: SULFAMETHOXAZOLE\TRIMETHOPRIM
  12. TAMSULOSIN [Concomitant]
     Active Substance: TAMSULOSIN
  13. XGEVA [Concomitant]
     Active Substance: DENOSUMAB

REACTIONS (1)
  - Urinary tract infection [Unknown]
